FAERS Safety Report 19896008 (Version 3)
Quarter: 2021Q4

REPORT INFORMATION
  Report Type: Spontaneous
  Country: NL (occurrence: NL)
  Receive Date: 20210929
  Receipt Date: 20211015
  Transmission Date: 20220303
  Serious: Yes (Other)
  Sender: FDA-Public Use
  Company Number: NL-SEATTLE GENETICS-2021SGN02726

PATIENT
  Age: 57 Year
  Sex: Female

DRUGS (15)
  1. CAPECITABINE [Suspect]
     Active Substance: CAPECITABINE
     Indication: HER2 positive breast cancer
     Dosage: UNK
     Dates: start: 20210511
  2. TUCATINIB [Suspect]
     Active Substance: TUCATINIB
     Indication: HER2 positive breast cancer
     Dosage: UNK
     Dates: start: 20210507
  3. TUCATINIB [Suspect]
     Active Substance: TUCATINIB
     Dosage: 500 MILLIGRAM, QD,250 MG, BID
     Dates: start: 20210511, end: 20210517
  4. TUCATINIB [Suspect]
     Active Substance: TUCATINIB
     Dosage: 300 MILLIGRAM, QD,150 MG, BID
     Dates: start: 20210527
  5. TUCATINIB [Suspect]
     Active Substance: TUCATINIB
     Dosage: 500 MILLIGRAM, QD, 250 MG, BID
     Dates: start: 20210610
  6. TUCATINIB [Suspect]
     Active Substance: TUCATINIB
     Dosage: 400 MILLIGRAM, QD (200 MG, BID  )
     Dates: start: 20210604
  7. TUCATINIB [Suspect]
     Active Substance: TUCATINIB
     Dosage: 600 MILLIGRAM, QD (300 MG, BID)
     Route: 048
     Dates: start: 20210304, end: 20210507
  8. POLYETHYLENE GLYCOLS [Concomitant]
     Active Substance: POLYETHYLENE GLYCOLS
     Dosage: UNK, QD
  9. OMEPRAZOLE [Concomitant]
     Active Substance: OMEPRAZOLE
     Dosage: 20 MILLIGRAM, QD
  10. ACETAMINOPHEN [Concomitant]
     Active Substance: ACETAMINOPHEN
     Dosage: 500 MILLIGRAM (500 MG)
     Route: 048
  11. FENTANYL [Concomitant]
     Active Substance: FENTANYL
     Dosage: UNK (50 UG/UUR ONCE Q3DAYS)
     Route: 062
  12. FENTANYL [Concomitant]
     Active Substance: FENTANYL
     Dosage: UNK (200 UG AS NEEDED  )
     Route: 060
  13. ANASTROZOLE [Concomitant]
     Active Substance: ANASTROZOLE
     Dosage: 1 MILLIGRAM, QD (1 MG, QD )
     Route: 048
  14. RIVAROXABAN [Concomitant]
     Active Substance: RIVAROXABAN
     Dosage: 20 MILLIGRAM, QD
     Route: 048
  15. ZOPICLONE [Concomitant]
     Active Substance: ZOPICLONE
     Dosage: 7.5 MILLIGRAM, QD (7.5 MG, QD IF NEEDED   )

REACTIONS (11)
  - Haemolytic anaemia [Unknown]
  - Haptoglobin decreased [Unknown]
  - Hepatic failure [Unknown]
  - Hyperbilirubinaemia [Recovered/Resolved]
  - Blood bilirubin increased [Recovered/Resolved]
  - Haemoglobin abnormal [Unknown]
  - Medication error [Unknown]
  - Folate deficiency [Unknown]
  - Reticulocyte count increased [Unknown]
  - Unevaluable event [Unknown]
  - Haemoglobin decreased [Unknown]

NARRATIVE: CASE EVENT DATE: 20210511
